FAERS Safety Report 4967490-7 (Version None)
Quarter: 2006Q2

REPORT INFORMATION
  Report Type: 
  Country: None (occurrence: None)
  Receive Date: 20060410
  Receipt Date: 20060327
  Transmission Date: 20061013
  Serious: Yes (Other)
  Sender: FDA-Public Use
  Company Number: PHFR2006GB01271

PATIENT
  Sex: Female

DRUGS (1)
  1. DEFEROXAMINE MESYLATE [Suspect]
     Route: 065

REACTIONS (1)
  - KERATITIS HERPETIC [None]
